FAERS Safety Report 5649233-7 (Version None)
Quarter: 2008Q1

REPORT INFORMATION
  Report Type: 
  Country: None (occurrence: None)
  Receive Date: 20080131
  Receipt Date: 20071127
  Transmission Date: 20080703
  Serious: No
  Sender: FDA-Public Use
  Company Number: US200711006360

PATIENT
  Sex: Female

DRUGS (4)
  1. BYETTA [Suspect]
     Indication: TYPE 2 DIABETES MELLITUS
     Dosage: 5, 10  UG, 2/D, SUBCUTANEOUS
     Route: 058
     Dates: start: 20071017, end: 20071113
  2. BYETTA [Suspect]
     Indication: TYPE 2 DIABETES MELLITUS
     Dosage: 5, 10  UG, 2/D, SUBCUTANEOUS
     Route: 058
     Dates: start: 20071114
  3. EXENATIDE PEN, DISPOSABLE DEVICE (EXENATIDE PEN) [Concomitant]
  4. METFORMIN HCL [Concomitant]

REACTIONS (2)
  - NASOPHARYNGITIS [None]
  - WEIGHT DECREASED [None]
